FAERS Safety Report 8215582 (Version 2)
Quarter: 2018Q3

REPORT INFORMATION
  Report Type: Spontaneous
  Country: FR (occurrence: FR)
  Receive Date: 20111031
  Receipt Date: 20180913
  Transmission Date: 20181010
  Serious: Yes (Hospitalization, Other)
  Sender: FDA-Public Use
  Company Number: FR-AMGEN-FRASP2011054472

PATIENT
  Age: 49 Year
  Sex: Female

DRUGS (1)
  1. ENBREL [Suspect]
     Active Substance: ETANERCEPT
     Indication: POLYMYOSITIS
     Dosage: UNK, DAILY
     Route: 058
     Dates: start: 2006, end: 201011

REACTIONS (3)
  - Product use in unapproved indication [Unknown]
  - Urinary retention postoperative [Not Recovered/Not Resolved]
  - Cervix carcinoma [Not Recovered/Not Resolved]

NARRATIVE: CASE EVENT DATE: 2006
